FAERS Safety Report 24339417 (Version 1)
Quarter: 2024Q3

REPORT INFORMATION
  Report Type: Spontaneous
  Country: US (occurrence: None)
  Receive Date: 20240918
  Receipt Date: 20240918
  Transmission Date: 20241017
  Serious: No
  Sender: Public
  Company Number: None

PATIENT
  Sex: Female

DRUGS (2)
  1. PRAVASTATIN [Suspect]
     Active Substance: PRAVASTATIN
     Dosage: FREQUENCY : AT BEDTIME;?
     Route: 048
     Dates: start: 20240423, end: 20240528
  2. ROSUVASTATIN [Suspect]
     Active Substance: ROSUVASTATIN\ROSUVASTATIN CALCIUM
     Dosage: FREQUENCY : DAILY;?
     Route: 048
     Dates: start: 20240611, end: 20240614

REACTIONS (1)
  - Rash [None]
